FAERS Safety Report 5039472-0 (Version None)
Quarter: 2006Q2

REPORT INFORMATION
  Report Type: 
  Country: None (occurrence: None)
  Receive Date: 20060629
  Receipt Date: 20050822
  Transmission Date: 20061013
  Serious: Yes (Other)
  Sender: FDA-Public Use
  Company Number: DE-BRISTOL-MYERS SQUIBB COMPANY-13155668

PATIENT

DRUGS (4)
  1. IFOSFAMIDE [Suspect]
     Indication: SARCOMA
     Route: 042
  2. MESNA [Suspect]
     Indication: SARCOMA
     Route: 042
  3. DAUNOXOME [Suspect]
     Indication: SARCOMA
     Route: 042
  4. GRANULOCYTE CSF [Concomitant]

REACTIONS (1)
  - RENAL FAILURE ACUTE [None]
